FAERS Safety Report 14170305 (Version 3)
Quarter: 2017Q4

REPORT INFORMATION
  Report Type: Spontaneous
  Country: AU (occurrence: AU)
  Receive Date: 20171108
  Receipt Date: 20171213
  Transmission Date: 20180321
  Serious: Yes (Hospitalization, Other)
  Sender: FDA-Public Use
  Company Number: AU-JNJFOC-20171105670

PATIENT
  Age: 73 Year
  Sex: Male
  Weight: 124 kg

DRUGS (1)
  1. IBRUTINIB [Suspect]
     Active Substance: IBRUTINIB
     Indication: CHRONIC LYMPHOCYTIC LEUKAEMIA
     Route: 048
     Dates: start: 20150907

REACTIONS (2)
  - Lacunar infarction [Recovering/Resolving]
  - Eastern Cooperative Oncology Group performance status worsened [Recovering/Resolving]

NARRATIVE: CASE EVENT DATE: 20170819
